FAERS Safety Report 4959286-7 (Version None)
Quarter: 2006Q1

REPORT INFORMATION
  Report Type: 
  Country: None (occurrence: None)
  Receive Date: 20060130
  Receipt Date: 20050826
  Transmission Date: 20060701
  Serious: Yes (Hospitalization)
  Sender: FDA-Public Use
  Company Number: 142980USA

PATIENT
  Age: 62 Year
  Sex: Male

DRUGS (2)
  1. COPAXONE [Suspect]
     Indication: MULTIPLE SCLEROSIS
     Dates: start: 20050701, end: 20050701
  2. BETASERON [Suspect]
     Indication: MULTIPLE SCLEROSIS
     Dosage: DAILY SUBCUTANEOUS
     Route: 058
     Dates: start: 20041103, end: 20050712

REACTIONS (1)
  - RENAL FAILURE [None]
